FAERS Safety Report 24248724 (Version 4)
Quarter: 2025Q3

REPORT INFORMATION
  Report Type: Report from Study
  Country: US (occurrence: US)
  Receive Date: 20240826
  Receipt Date: 20250819
  Transmission Date: 20251021
  Serious: Yes (Death)
  Sender: ABBVIE
  Company Number: US-ABBVIE-5892889

PATIENT
  Age: 70 Year
  Sex: Male

DRUGS (17)
  1. VENCLEXTA [Suspect]
     Active Substance: VENETOCLAX
     Indication: Acute myeloid leukaemia
     Dosage: FORM STRENGTH: 100MG, DAY 1
     Route: 048
     Dates: start: 20230615, end: 20230615
  2. VENCLEXTA [Suspect]
     Active Substance: VENETOCLAX
     Indication: Acute myeloid leukaemia
     Dosage: FORM STRENGTH: 100MG, DAY 2: 200MG
     Route: 048
  3. VENCLEXTA [Suspect]
     Active Substance: VENETOCLAX
     Indication: Acute myeloid leukaemia
     Dosage: FORM STRENGTH: 100MG DAY 3-28 : 400MG TAKE WITH FOOD
     Route: 048
  4. VENCLEXTA [Suspect]
     Active Substance: VENETOCLAX
     Indication: Acute myeloid leukaemia
     Dosage: TAKE 1 TABLET BY MOUTH (100MG) EVERY DAY FOR 7DAYS
     Route: 048
  5. VENCLEXTA [Suspect]
     Active Substance: VENETOCLAX
     Indication: Acute myeloid leukaemia
     Dosage: FORM STRENGTH: 100MG, TAKE 2 TABLET(S) BY MOUTH (200MG) EVERY DAY WITH FOOD (AFTER FIRST WEEK RAM...
     Route: 048
  6. VENCLEXTA [Suspect]
     Active Substance: VENETOCLAX
     Indication: Acute myeloid leukaemia
     Dosage: FORM STRENGTH: 100MG, TAKE 4 TABLET(S) BY MOUTH EVERY DAY
     Route: 048
  7. AZACITIDINE [Concomitant]
     Active Substance: AZACITIDINE
     Indication: Product used for unknown indication
     Route: 058
  8. ONDANSETRON [Concomitant]
     Active Substance: ONDANSETRON
     Indication: Vomiting
     Dosage: 8 MG TABLET ORALLY ONCE 1 TABLET ORALLY EVERY 8 HOURS AS NEEDED FOR  NAUSEA AND VOMITING. AND TAK...
     Route: 048
  9. EPINEPHRINE [Concomitant]
     Active Substance: EPINEPHRINE
     Indication: Hypersensitivity
     Route: 030
  10. DIPHENHYDRAMINE [Concomitant]
     Active Substance: DIPHENHYDRAMINE
     Indication: Product used for unknown indication
     Route: 042
  11. FAMOTIDINE [Concomitant]
     Active Substance: FAMOTIDINE
     Indication: Hypersensitivity
     Route: 042
  12. HYDROCORTISONE [Concomitant]
     Active Substance: HYDROCORTISONE
     Indication: Hypersensitivity
     Route: 042
  13. METHYLPREDNISOLONE [Concomitant]
     Active Substance: METHYLPREDNISOLONE
     Indication: Hypersensitivity
     Route: 042
  14. ALLOPURINOL [Concomitant]
     Active Substance: ALLOPURINOL
     Indication: Product used for unknown indication
     Route: 048
  15. VALIUM [Concomitant]
     Active Substance: DIAZEPAM
     Indication: Product used for unknown indication
     Route: 048
  16. LUSPATERCEPT [Concomitant]
     Active Substance: LUSPATERCEPT
     Indication: Product used for unknown indication
     Route: 058
  17. ASPIRIN [Concomitant]
     Active Substance: ASPIRIN
     Indication: Product used for unknown indication
     Route: 048

REACTIONS (2)
  - Death [Fatal]
  - Off label use [Unknown]

NARRATIVE: CASE EVENT DATE: 20240723
